FAERS Safety Report 4338836-8 (Version None)
Quarter: 2004Q2

REPORT INFORMATION
  Report Type: 
  Country: None (occurrence: None)
  Receive Date: 20040414
  Receipt Date: 20031229
  Transmission Date: 20050107
  Serious: Yes (Hospitalization)
  Sender: FDA-Public Use
  Company Number: JP-MERCK-0312USA02560

PATIENT
  Age: 32 Year
  Sex: Male

DRUGS (4)
  1. FLUTICASONE PROPIONATE [Concomitant]
     Indication: ASTHMA
     Route: 065
     Dates: start: 20031204, end: 20031217
  2. SINGULAIR [Suspect]
     Indication: ASTHMA
     Route: 048
     Dates: start: 20031204, end: 20031217
  3. SALMETEROL XINAFOATE [Concomitant]
     Indication: ASTHMA
     Route: 065
     Dates: start: 20031204, end: 20031217
  4. THEOPHYLLINE [Concomitant]
     Indication: ASTHMA
     Route: 065
     Dates: start: 20031204, end: 20031217

REACTIONS (2)
  - EOSINOPHILIA [None]
  - PNEUMONIA [None]
